FAERS Safety Report 8454337-X (Version None)
Quarter: 2012Q2

REPORT INFORMATION
  Report Type: 
  Country: None (occurrence: None)
  Receive Date: 20120621
  Receipt Date: 20120315
  Transmission Date: 20120825
  Serious: No
  Sender: FDA-Public Use
  Company Number: US-ALLERGAN-1203770US

PATIENT
  Age: 81 Year
  Sex: Female

DRUGS (2)
  1. LUMIGAN [Suspect]
     Indication: INTRAOCULAR PRESSURE INCREASED
     Dosage: 2 GTT, BID
     Route: 047
     Dates: start: 20120312
  2. BETIMOL                            /00371201/ [Concomitant]
     Indication: INTRAOCULAR PRESSURE INCREASED
     Dosage: 1 GTT, BID
     Route: 047

REACTIONS (1)
  - OCULAR HYPERAEMIA [None]
